FAERS Safety Report 4413074-9 (Version None)
Quarter: 2004Q3

REPORT INFORMATION
  Report Type: 
  Country: None (occurrence: None)
  Receive Date: 20040802
  Receipt Date: 20040802
  Transmission Date: 20050211
  Serious: Yes (Other)
  Sender: FDA-Public Use
  Company Number: None

PATIENT
  Sex: Male
  Weight: 125.6464 kg

DRUGS (23)
  1. CLOPIDOGREL BISULFATE [Suspect]
     Indication: CORONARY ARTERY DISEASE
     Dosage: 75 MG QD ORAL
     Route: 048
     Dates: start: 20040210, end: 20040303
  2. CLOPIDOGREL BISULFATE [Suspect]
     Indication: MYOCARDIAL INFARCTION
     Dosage: 75 MG QD ORAL
     Route: 048
     Dates: start: 20040210, end: 20040303
  3. ALBUTEROL/IPRATROP [Concomitant]
  4. ALBUTEROL S04 [Concomitant]
  5. ALPRAZOLAM [Concomitant]
  6. ASPIRIN [Concomitant]
  7. CITALOPRAM [Concomitant]
  8. FLUNISOLIDE [Concomitant]
  9. FUROSEMIDE [Concomitant]
  10. HYDROCODONE/ACETAMINOPHEN [Concomitant]
  11. INSULIN NPH HUMAN (NOVOLIN N) [Concomitant]
  12. INJ NOVOLIN N [Concomitant]
  13. ISOSORBIDE DINITRATE [Concomitant]
  14. SYNTHROID [Concomitant]
  15. LISINOPRIL [Concomitant]
  16. METFORMIN HCL [Concomitant]
  17. NIACIN-NIASPAN- [Concomitant]
  18. NITROGLYCERIN-ETHEX- [Concomitant]
  19. POTASSIUM CL [Concomitant]
  20. ROSGLITAZONE MALEATE [Concomitant]
  21. SIMVASTATIN [Concomitant]
  22. CLONIDINE HCL [Concomitant]
  23. LANOXIN [Concomitant]

REACTIONS (5)
  - EYE SWELLING [None]
  - OEDEMA [None]
  - PHARYNGEAL OEDEMA [None]
  - RASH [None]
  - URTICARIA [None]
